FAERS Safety Report 21634394 (Version 2)
Quarter: 2022Q4

REPORT INFORMATION
  Report Type: Report from Study
  Country: CN (occurrence: CN)
  Receive Date: 20221123
  Receipt Date: 20221129
  Transmission Date: 20230113
  Serious: Yes (Other)
  Sender: FDA-Public Use
  Company Number: CN-UCBSA-2022065840

PATIENT
  Sex: Male
  Weight: 53 kg

DRUGS (5)
  1. LACOSAMIDE [Suspect]
     Active Substance: LACOSAMIDE
     Indication: Product used for unknown indication
     Dosage: 50MG DAILY
     Dates: start: 20220518, end: 20220615
  2. LACOSAMIDE [Suspect]
     Active Substance: LACOSAMIDE
     Dosage: 100MG DAILY
     Dates: start: 20220525, end: 20220601
  3. LACOSAMIDE [Suspect]
     Active Substance: LACOSAMIDE
     Dosage: 150MG DAILY
     Dates: start: 20220602, end: 20220608
  4. LACOSAMIDE [Suspect]
     Active Substance: LACOSAMIDE
     Dosage: 200MG DAILY
     Dates: start: 20220609, end: 20220615
  5. LACOSAMIDE [Suspect]
     Active Substance: LACOSAMIDE
     Dosage: 300MG DAILY
     Dates: start: 20220616, end: 20221107

REACTIONS (3)
  - Cardiomegaly [Unknown]
  - Off label use [Unknown]
  - Underdose [Unknown]

NARRATIVE: CASE EVENT DATE: 20220518
